FAERS Safety Report 10406773 (Version 3)
Quarter: 2014Q3

REPORT INFORMATION
  Report Type: Report from Study
  Country: US (occurrence: US)
  Receive Date: 20140825
  Receipt Date: 20140927
  Transmission Date: 20150326
  Serious: Yes (Other)
  Sender: FDA-Public Use
  Company Number: US-ABBVIE-14P-163-1273486-00

PATIENT
  Age: 72 Year
  Sex: Female

DRUGS (11)
  1. HUMIRA [Suspect]
     Active Substance: ADALIMUMAB
     Indication: PSORIASIS
     Dates: start: 201001, end: 201101
  2. LISINOPRIL. [Suspect]
     Active Substance: LISINOPRIL
     Indication: BLOOD PRESSURE
  3. ANTIBIOTICS [Suspect]
     Active Substance: UNSPECIFIED INGREDIENT
     Indication: PNEUMONIA
     Route: 048
     Dates: start: 2014
  4. HUMIRA [Suspect]
     Active Substance: ADALIMUMAB
     Dates: start: 20140814
  5. LISINOPRIL. [Suspect]
     Active Substance: LISINOPRIL
  6. HCTZ [Suspect]
     Active Substance: HYDROCHLOROTHIAZIDE
     Indication: HYPERTENSION
  7. TRAMADOL [Suspect]
     Active Substance: TRAMADOL
     Indication: PAIN
     Dates: start: 20140725
  8. LISINOPRIL. [Suspect]
     Active Substance: LISINOPRIL
  9. TYLENOL [Concomitant]
     Active Substance: ACETAMINOPHEN
     Indication: PRODUCT USED FOR UNKNOWN INDICATION
     Dosage: MAXIMUM OF 6 IN 24 HOURS
  10. LOMOTIL [Concomitant]
     Active Substance: ATROPINE SULFATE\DIPHENOXYLATE HYDROCHLORIDE
     Indication: DIARRHOEA
  11. MUSCLE RELAXANTS [Suspect]
     Active Substance: UNSPECIFIED INGREDIENT
     Indication: MUSCLE RELAXANT THERAPY
     Dates: start: 20140725

REACTIONS (43)
  - Keratoacanthoma [Unknown]
  - Cataract [Unknown]
  - Drug effect incomplete [Unknown]
  - Pneumonia [Unknown]
  - Pulmonary mass [Unknown]
  - Bronchitis chronic [Unknown]
  - Hyperlipidaemia [Unknown]
  - Peripheral swelling [Not Recovered/Not Resolved]
  - Dyspnoea [Unknown]
  - Cyst [Recovered/Resolved]
  - Pneumonia [Unknown]
  - Peripheral swelling [Unknown]
  - Arthralgia [Unknown]
  - Diverticulitis [Unknown]
  - Pain [Unknown]
  - Blindness transient [Recovered/Resolved]
  - Bursitis [Unknown]
  - Hypertension [Unknown]
  - Blood pressure increased [Not Recovered/Not Resolved]
  - Abdominal distension [Not Recovered/Not Resolved]
  - Hypertension [Unknown]
  - Psoriasis [Recovering/Resolving]
  - Drug ineffective [Unknown]
  - Drug ineffective [Not Recovered/Not Resolved]
  - Osteoarthritis [Unknown]
  - Gastrooesophageal reflux disease [Unknown]
  - Pain [Not Recovered/Not Resolved]
  - Sciatica [Not Recovered/Not Resolved]
  - Blindness transient [Unknown]
  - Insomnia [Unknown]
  - Umbilical hernia [Not Recovered/Not Resolved]
  - Cough [Unknown]
  - Fear [Unknown]
  - Sedation [Unknown]
  - Drug administered at inappropriate site [Unknown]
  - Mobility decreased [Unknown]
  - Feeling abnormal [Unknown]
  - Myocardial infarction [Not Recovered/Not Resolved]
  - Sciatica [Recovering/Resolving]
  - Injection site haemorrhage [Unknown]
  - Aspiration [Unknown]
  - Lumbar radiculopathy [Unknown]
  - Musculoskeletal pain [Recovered/Resolved]

NARRATIVE: CASE EVENT DATE: 201001
